FAERS Safety Report 9700190 (Version 1)
Quarter: 2013Q4

REPORT INFORMATION
  Report Type: Spontaneous
  Country: IT (occurrence: None)
  Receive Date: 20131119
  Receipt Date: 20131119
  Transmission Date: 20140711
  Serious: Yes (Hospitalization)
  Sender: FDA-Public Use
  Company Number: 2013IT002211

PATIENT
  Age: 64 Year
  Sex: Female

DRUGS (7)
  1. PONATINIB (AP24534) [Suspect]
     Indication: ACUTE LYMPHOCYTIC LEUKAEMIA
     Dosage: 45 MG, QD, ORAL
     Route: 048
     Dates: start: 20130511, end: 20130722
  2. WARFARIN (WARFARIN SODIUM) (TABLET) [Concomitant]
  3. INSULIN HUMAN (INSULIN HUMAN) [Concomitant]
  4. NEBIVOLOL (VEBIVOLOL) [Concomitant]
  5. ALLOPURINOL [Concomitant]
  6. L-THYROXIN (LEVOTHYROXINE SODIUM) [Concomitant]
  7. LANSOPRAZOLE (LANSOPRAZOLE) [Concomitant]

REACTIONS (6)
  - Small intestinal obstruction [None]
  - Renal failure [None]
  - Ichthyosis acquired [None]
  - Vomiting [None]
  - Constipation [None]
  - Fatigue [None]
